FAERS Safety Report 23622809 (Version 2)
Quarter: 2024Q1

REPORT INFORMATION
  Report Type: Spontaneous
  Country: US (occurrence: US)
  Receive Date: 20240312
  Receipt Date: 20240314
  Transmission Date: 20240410
  Serious: Yes (Hospitalization, Other)
  Sender: FDA-Public Use
  Company Number: US-MLMSERVICE-20240301-4852710-1

PATIENT
  Age: 46 Year
  Sex: Male

DRUGS (1)
  1. CIPROFLOXACIN [Suspect]
     Active Substance: CIPROFLOXACIN
     Indication: Illness
     Dosage: UNK

REACTIONS (2)
  - Tendon calcification [Not Recovered/Not Resolved]
  - Tendonitis [Not Recovered/Not Resolved]
